FAERS Safety Report 9310282 (Version 2)
Quarter: 2013Q4

REPORT INFORMATION
  Report Type: Spontaneous
  Country: RU (occurrence: RU)
  Receive Date: 20130527
  Receipt Date: 20131227
  Transmission Date: 20140711
  Serious: Yes (Death)
  Sender: FDA-Public Use
  Company Number: PHHY2013RU052512

PATIENT
  Age: 85 Year
  Sex: Female

DRUGS (2)
  1. EXELON [Suspect]
  2. CHLORPROTHIXENUM [Concomitant]

REACTIONS (1)
  - Brain oedema [Fatal]
